FAERS Safety Report 26167768 (Version 1)
Quarter: 2025Q4

REPORT INFORMATION
  Report Type: Spontaneous
  Country: US (occurrence: US)
  Receive Date: 20251217
  Receipt Date: 20251217
  Transmission Date: 20260117
  Serious: No
  Sender: CELLTRION
  Company Number: US-CELLTRION INC.-2025US013195

PATIENT

DRUGS (3)
  1. RITUXIMAB [Suspect]
     Active Substance: RITUXIMAB
     Indication: Multiple sclerosis relapse
     Dosage: 500 MG EVERY 6 MONTHS AND CONTINUED FOR 4.5 YEARS; SWITCHED AGAIN BACK TO RITUXIMAB FOR ANOTHER 3.5
  2. OCRELIZUMAB [Suspect]
     Active Substance: OCRELIZUMAB
     Indication: Multiple sclerosis relapse
     Dosage: UNK
     Dates: start: 202002
  3. UBLITUXIMAB [Suspect]
     Active Substance: UBLITUXIMAB
     Indication: Multiple sclerosis relapse
     Dosage: HE WAS SWITCHED TO UBLITUXIMAB IN FEBRUARY 2024.
     Dates: start: 202402

REACTIONS (2)
  - Loss of therapeutic response [Unknown]
  - Off label use [Unknown]
